FAERS Safety Report 17337196 (Version 2)
Quarter: 2020Q2

REPORT INFORMATION
  Report Type: Spontaneous
  Country: JP (occurrence: JP)
  Receive Date: 20200129
  Receipt Date: 20200421
  Transmission Date: 20200713
  Serious: Yes (Other)
  Sender: FDA-Public Use
  Company Number: JP-ROCHE-2529397

PATIENT
  Age: 6 Decade
  Sex: Male

DRUGS (1)
  1. HEMLIBRA [Suspect]
     Active Substance: EMICIZUMAB-KXWH
     Indication: HAEMOPHILIA A WITHOUT INHIBITORS
     Route: 058

REACTIONS (6)
  - Injury [Unknown]
  - Joint swelling [Unknown]
  - Thoracic haemorrhage [Recovered/Resolved]
  - Therapeutic response decreased [Unknown]
  - Traumatic intracranial haemorrhage [Recovered/Resolved]
  - Musculoskeletal pain [Unknown]
